FAERS Safety Report 5760961-5 (Version None)
Quarter: 2008Q2

REPORT INFORMATION
  Report Type: 
  Country: None (occurrence: None)
  Receive Date: 20080606
  Receipt Date: 20080128
  Transmission Date: 20081010
  Serious: No
  Sender: FDA-Public Use
  Company Number: US-ASTRAZENECA-2008UW02000

PATIENT
  Age: 45 Year
  Sex: Female

DRUGS (3)
  1. PRILOSEC [Suspect]
     Indication: GASTROOESOPHAGEAL REFLUX DISEASE
     Route: 048
  2. PRILOSEC [Suspect]
     Route: 048
  3. LEVOTHYROXINE SODIUM [Concomitant]

REACTIONS (3)
  - BACK PAIN [None]
  - HYPOTHYROIDISM [None]
  - MUSCULAR WEAKNESS [None]
